FAERS Safety Report 7972766-5 (Version None)
Quarter: 2011Q4

REPORT INFORMATION
  Report Type: 
  Country: None (occurrence: None)
  Receive Date: 20111213
  Receipt Date: 20111205
  Transmission Date: 20120403
  Serious: Yes (Hospitalization, Other)
  Sender: FDA-Public Use
  Company Number: FR-ROCHE-1010143

PATIENT
  Age: 37 Year
  Sex: Female
  Weight: 70 kg

DRUGS (1)
  1. PEGASYS [Suspect]
     Indication: HEPATITIS B
     Route: 058
     Dates: start: 20101101, end: 20110924

REACTIONS (6)
  - METRORRHAGIA [None]
  - THROMBOCYTOPENIA [None]
  - HAEMATURIA [None]
  - NEUTROPENIA [None]
  - INFLUENZA LIKE ILLNESS [None]
  - VERTIGO [None]
